FAERS Safety Report 8310473-X (Version None)
Quarter: 2012Q2

REPORT INFORMATION
  Report Type: 
  Country: None (occurrence: None)
  Receive Date: 20120425
  Receipt Date: 20120410
  Transmission Date: 20120825
  Serious: Yes (Hospitalization, Disabling, Other)
  Sender: FDA-Public Use
  Company Number: US-MYLANLABS-2012S1008457

PATIENT
  Sex: Male
  Weight: 129.73 kg

DRUGS (34)
  1. DIGOXIN [Suspect]
     Route: 048
     Dates: start: 20050216, end: 20090520
  2. FLAGYL [Concomitant]
  3. LISINOPRIL [Concomitant]
  4. LASIX [Concomitant]
  5. SYNTHROID [Concomitant]
  6. AMIODARONE HCL [Concomitant]
  7. ISOSORBIDE DINITRATE [Concomitant]
  8. FERROUS SULFATE TAB [Concomitant]
  9. METFORMIN HCL [Concomitant]
  10. AMBIEN CR [Concomitant]
  11. JANUVIA [Concomitant]
  12. GLIMEPIRIDE [Concomitant]
  13. SYMBICORT [Concomitant]
     Dosage: 160/4.5 - 2 PUFFS
  14. PRILOSEC [Concomitant]
  15. LEXAPRO [Concomitant]
  16. COLCHICINE [Concomitant]
  17. AVANDAMET [Concomitant]
  18. MULTI-VITAMINS [Concomitant]
  19. CIPROFLOXACIN [Concomitant]
  20. LIPITOR [Concomitant]
  21. COREG [Concomitant]
  22. COUMADIN [Concomitant]
  23. NEURONTIN [Concomitant]
  24. INSPRA /01362602/ [Concomitant]
  25. PROTONIX [Concomitant]
  26. POTASSIUM CHLORIDE [Concomitant]
  27. BIDIL [Concomitant]
     Dosage: 20-37.5MG TABLET - 1 TABLET 2 TIMES A DAY
  28. SPIRONOLACTONE [Concomitant]
  29. SINEMET [Concomitant]
  30. ASPIRIN [Concomitant]
  31. AMOXICILLIN [Concomitant]
  32. AVANDIA [Concomitant]
     Dosage: 4 MG TABLET
  33. PREDNISONE [Concomitant]
  34. ALBUTEROL [Concomitant]

REACTIONS (63)
  - DIARRHOEA [None]
  - TOXICITY TO VARIOUS AGENTS [None]
  - ATRIAL FIBRILLATION [None]
  - CARDIAC FAILURE CONGESTIVE [None]
  - MITRAL VALVE INCOMPETENCE [None]
  - CONDITION AGGRAVATED [None]
  - EPISTAXIS [None]
  - HEART RATE DECREASED [None]
  - WEIGHT DECREASED [None]
  - WHEEZING [None]
  - NAUSEA [None]
  - ANXIETY [None]
  - CENTRAL OBESITY [None]
  - DIABETIC NEUROPATHY [None]
  - HYPOAESTHESIA [None]
  - IMPLANTABLE DEFIBRILLATOR INSERTION [None]
  - SPINAL OSTEOARTHRITIS [None]
  - VITREOUS DETACHMENT [None]
  - WAIST CIRCUMFERENCE INCREASED [None]
  - LEFT VENTRICULAR HYPERTROPHY [None]
  - CRANIOCEREBRAL INJURY [None]
  - ABDOMINAL DISTENSION [None]
  - BLOOD GLUCOSE DECREASED [None]
  - BLOOD PRESSURE DECREASED [None]
  - BRADYCARDIA [None]
  - CHEST PAIN [None]
  - CHILLS [None]
  - ECHOCARDIOGRAM ABNORMAL [None]
  - INSOMNIA [None]
  - PALPITATIONS [None]
  - PARAESTHESIA [None]
  - RADICULOPATHY [None]
  - HEARING IMPAIRED [None]
  - PULMONARY HYPERTENSION [None]
  - VENTRICULAR TACHYCARDIA [None]
  - ABDOMINAL TENDERNESS [None]
  - BACK PAIN [None]
  - DYSPNOEA [None]
  - EXOSTOSIS [None]
  - FALL [None]
  - INCREASED TENDENCY TO BRUISE [None]
  - JUGULAR VEIN DISTENSION [None]
  - RETINOPATHY HYPERTENSIVE [None]
  - APNOEA [None]
  - HYPERTENSION [None]
  - PERICARDIAL EFFUSION [None]
  - ELECTROCARDIOGRAM ABNORMAL [None]
  - FRACTURE [None]
  - ATRIAL FLUTTER [None]
  - CHRONIC OBSTRUCTIVE PULMONARY DISEASE [None]
  - FLUID RETENTION [None]
  - HEADACHE [None]
  - OEDEMA PERIPHERAL [None]
  - LOSS OF CONSCIOUSNESS [None]
  - ABDOMINAL REBOUND TENDERNESS [None]
  - ANKLE FRACTURE [None]
  - DYSPNOEA EXERTIONAL [None]
  - URINE OUTPUT DECREASED [None]
  - COMPUTERISED TOMOGRAM ABNORMAL [None]
  - COUGH [None]
  - FATIGUE [None]
  - HYPERHIDROSIS [None]
  - UMBILICAL HERNIA [None]
